FAERS Safety Report 10128204 (Version 1)
Quarter: 2014Q2

REPORT INFORMATION
  Report Type: Spontaneous
  Country: US (occurrence: US)
  Receive Date: 20140428
  Receipt Date: 20140428
  Transmission Date: 20141212
  Serious: No
  Sender: FDA-Public Use
  Company Number: US-BIOGENIDEC-2014BI038684

PATIENT
  Age: 52 Year
  Sex: Female

DRUGS (7)
  1. AVONEX [Suspect]
     Indication: MULTIPLE SCLEROSIS
     Route: 030
     Dates: start: 20130128
  2. HYDROCODONE-ACETAMINOPHEN [Concomitant]
  3. METANX [Concomitant]
  4. POTASSIUM CHLORIDE ER [Concomitant]
  5. TRAZODONE HCI [Concomitant]
  6. XANAX [Concomitant]
  7. XARELTO [Concomitant]

REACTIONS (1)
  - Injection site haemorrhage [Unknown]
